FAERS Safety Report 6866195-5 (Version None)
Quarter: 2010Q2

REPORT INFORMATION
  Report Type: 
  Country: None (occurrence: None)
  Receive Date: 20100610
  Receipt Date: 20100323
  Transmission Date: 20101027
  Serious: Yes (Other)
  Sender: FDA-Public Use
  Company Number: 2010SP017732

PATIENT
  Age: 44 Year
  Sex: Female

DRUGS (4)
  1. SAPHRIS [Suspect]
     Indication: BIPOLAR DISORDER
     Dosage: 5 MG; QD
  2. ZYPREXA [Concomitant]
  3. CYMBALTA [Concomitant]
  4. CLONIDINE [Concomitant]

REACTIONS (2)
  - AKATHISIA [None]
  - INAPPROPRIATE SCHEDULE OF DRUG ADMINISTRATION [None]
